FAERS Safety Report 4349289-8 (Version None)
Quarter: 2004Q2

REPORT INFORMATION
  Report Type: 
  Country: None (occurrence: None)
  Receive Date: 20040426
  Receipt Date: 20040414
  Transmission Date: 20050107
  Serious: Yes (Other)
  Sender: FDA-Public Use
  Company Number: US-JNJFOC-20040402151

PATIENT
  Age: 34 Year
  Sex: Female

DRUGS (3)
  1. REMICADE [Suspect]
     Indication: RHEUMATOID ARTHRITIS
     Dosage: INTRAVENOUS
     Route: 042
     Dates: start: 20040315, end: 20040315
  2. PREDNISONE [Suspect]
  3. PLAQUENIL [Concomitant]

REACTIONS (3)
  - CHORIORETINAL DISORDER [None]
  - RETINAL DISORDER [None]
  - VISUAL ACUITY REDUCED [None]
